FAERS Safety Report 9936809 (Version 1)
Quarter: 2014Q1

REPORT INFORMATION
  Report Type: Spontaneous
  Country: US (occurrence: None)
  Receive Date: 20140109
  Receipt Date: 20140109
  Transmission Date: 20141002
  Serious: Yes (Other)
  Sender: FDA-Public Use
  Company Number: PHEH2013US020105

PATIENT
  Age: 61 Year
  Sex: Male

DRUGS (4)
  1. SIGNIFOR (PASIREOTIDE) INJECTION [Suspect]
     Indication: PITUITARY-DEPENDENT CUSHING^S SYNDROME
     Route: 058
     Dates: start: 20130922, end: 20130923
  2. TEMODAR (TEMOZOLAMIDE) [Concomitant]
  3. LEVOTHYROXINE (LEVOTHYROXINE) [Concomitant]
  4. PREDNISONE (PREDNISONE) [Concomitant]

REACTIONS (1)
  - Haematochezia [None]
